FAERS Safety Report 15352411 (Version 7)
Quarter: 2020Q3

REPORT INFORMATION
  Report Type: Spontaneous
  Country: US (occurrence: US)
  Receive Date: 20180905
  Receipt Date: 20200807
  Transmission Date: 20201102
  Serious: Yes (Hospitalization)
  Sender: FDA-Public Use
  Company Number: US-VIFOR (INTERNATIONAL) INC.-VIT-2018-08611

PATIENT
  Age: 68 Year
  Sex: Male
  Weight: 67.19 kg

DRUGS (18)
  1. VELTASSA [Suspect]
     Active Substance: PATIROMER
     Route: 048
     Dates: start: 20160304, end: 202007
  2. ZINC SULFATE. [Concomitant]
     Active Substance: ZINC SULFATE
  3. VELTASSA [Suspect]
     Active Substance: PATIROMER
     Route: 048
     Dates: start: 20160203
  4. MAGNESIUM GLUCONATE [Concomitant]
     Active Substance: MAGNESIUM GLUCONATE
  5. LIPITOR [Concomitant]
     Active Substance: ATORVASTATIN CALCIUM
  6. ALLOPURINOL. [Concomitant]
     Active Substance: ALLOPURINOL
  7. LOSARTAN POTASSIUM. [Concomitant]
     Active Substance: LOSARTAN POTASSIUM
  8. VITAMIN D3 [Concomitant]
     Active Substance: CHOLECALCIFEROL
  9. HYDRALAZINE [Concomitant]
     Active Substance: HYDRALAZINE HYDROCHLORIDE
  10. CETIRIZINE HCL [Concomitant]
     Active Substance: CETIRIZINE HYDROCHLORIDE
  11. ASPIRIN. [Concomitant]
     Active Substance: ASPIRIN
  12. VELTASSA [Suspect]
     Active Substance: PATIROMER
     Indication: HYPERKALAEMIA
     Route: 048
  13. KALEXATE [Concomitant]
     Active Substance: SODIUM POLYSTYRENE SULFONATE
  14. FERROCITE [Concomitant]
     Active Substance: FERROUS FUMARATE
  15. GEMFIBROZIL. [Concomitant]
     Active Substance: GEMFIBROZIL
  16. LASIX [Concomitant]
     Active Substance: FUROSEMIDE
  17. BASAGLAR [Concomitant]
     Active Substance: INSULIN GLARGINE
     Dosage: 25 UNITS IN THE MORNING AND 5 UNITS IN THE EVENING
  18. AMLODIPINE BESYLATE. [Concomitant]
     Active Substance: AMLODIPINE BESYLATE

REACTIONS (6)
  - Renal disorder [Unknown]
  - Off label use [Unknown]
  - Blood potassium increased [Recovered/Resolved]
  - Product dose omission issue [Unknown]
  - Pulmonary oedema [Unknown]
  - Sepsis [Unknown]

NARRATIVE: CASE EVENT DATE: 20160203
